FAERS Safety Report 20128190 (Version 1)
Quarter: 2021Q4

REPORT INFORMATION
  Report Type: Spontaneous
  Country: None (occurrence: US)
  Receive Date: 20211129
  Receipt Date: 20211129
  Transmission Date: 20220303
  Serious: No
  Sender: FDA-Public Use
  Company Number: US-Jiangsu Hengrui Medicine Co., Ltd.-2122458

PATIENT
  Age: 64 Year
  Sex: Male

DRUGS (2)
  1. CYCLOPHOSPHAMIDE [Suspect]
     Active Substance: CYCLOPHOSPHAMIDE
     Indication: Hormone-refractory prostate cancer
     Dates: start: 20210907, end: 20211016
  2. DIETHYLSTILBESTROL [Suspect]
     Active Substance: DIETHYLSTILBESTROL
     Dates: start: 20210907, end: 20211016

REACTIONS (2)
  - Neoplasm progression [Unknown]
  - Product use in unapproved indication [Unknown]

NARRATIVE: CASE EVENT DATE: 20210907
